FAERS Safety Report 5777140-8 (Version None)
Quarter: 2008Q2

REPORT INFORMATION
  Report Type: 
  Country: None (occurrence: None)
  Receive Date: 20080618
  Receipt Date: 20080609
  Transmission Date: 20081010
  Serious: Yes (Other)
  Sender: FDA-Public Use
  Company Number: US-MERCK-0806USA02715

PATIENT
  Age: 70 Year
  Sex: Female

DRUGS (9)
  1. PRINIVIL [Suspect]
     Route: 048
     Dates: end: 20080118
  2. IXABEPILONE [Suspect]
     Indication: BREAST CANCER
     Route: 042
     Dates: start: 20080111, end: 20080111
  3. IXABEPILONE [Suspect]
     Route: 042
     Dates: start: 20080201, end: 20080201
  4. IXABEPILONE [Suspect]
     Route: 042
     Dates: start: 20080304, end: 20080304
  5. HYDRODIURIL [Suspect]
     Route: 048
     Dates: end: 20080501
  6. [THERAPY UNSPECIFIED] [Concomitant]
     Route: 065
  7. OMEPRAZOLE [Concomitant]
     Route: 065
  8. COMPAZINE [Concomitant]
     Route: 065
  9. ASPIRIN [Concomitant]
     Route: 065
     Dates: end: 20080128

REACTIONS (2)
  - CYANOSIS [None]
  - ORTHOSTATIC HYPOTENSION [None]
